FAERS Safety Report 10023149 (Version 1)
Quarter: 2014Q1

REPORT INFORMATION
  Report Type: Spontaneous
  Country: AL (occurrence: AL)
  Receive Date: 20140320
  Receipt Date: 20140320
  Transmission Date: 20141002
  Serious: Yes (Death, Hospitalization)
  Sender: FDA-Public Use
  Company Number: AL-ALVOGEN-2014AL000466

PATIENT
  Age: 42 Year
  Sex: Female

DRUGS (2)
  1. METFORMIN [Suspect]
     Indication: TYPE 2 DIABETES MELLITUS
  2. BISOPROLOL [Concomitant]
     Indication: HYPERTENSION

REACTIONS (2)
  - Multi-organ failure [Fatal]
  - Lactic acidosis [Fatal]
